FAERS Safety Report 21850460 (Version 1)
Quarter: 2023Q1

REPORT INFORMATION
  Report Type: Report from Study
  Country: US (occurrence: US)
  Receive Date: 20230111
  Receipt Date: 20230111
  Transmission Date: 20230418
  Serious: Yes (Other)
  Sender: FDA-Public Use
  Company Number: US-ALLERGAN-2300643US

PATIENT
  Sex: Female

DRUGS (1)
  1. CYCLOSPORINE [Suspect]
     Active Substance: CYCLOSPORINE
     Indication: Product used for unknown indication
     Dosage: 2 GTT, BID
     Route: 047

REACTIONS (5)
  - Cystoid macular oedema [Unknown]
  - Visual impairment [Not Recovered/Not Resolved]
  - Glaucoma [Unknown]
  - Product use issue [Unknown]
  - Dry eye [Unknown]
